FAERS Safety Report 15402765 (Version 1)
Quarter: 2018Q3

REPORT INFORMATION
  Report Type: Spontaneous
  Country: US (occurrence: US)
  Receive Date: 20180917
  Receipt Date: 20180917
  Transmission Date: 20181010
  Serious: Yes (Disabling)
  Sender: FDA-Public Use
  Company Number: None

PATIENT
  Age: 39 Year
  Sex: Female
  Weight: 60.75 kg

DRUGS (1)
  1. CLONAZEPAM. [Suspect]
     Active Substance: CLONAZEPAM

REACTIONS (7)
  - Drug withdrawal syndrome [None]
  - Cognitive disorder [None]
  - Drug tolerance [None]
  - Anxiety [None]
  - Loss of personal independence in daily activities [None]
  - Panic reaction [None]
  - Executive dysfunction [None]
